FAERS Safety Report 5893790-2 (Version None)
Quarter: 2008Q3

REPORT INFORMATION
  Report Type: 
  Country: None (occurrence: None)
  Receive Date: 20080923
  Receipt Date: 20080910
  Transmission Date: 20090109
  Serious: Yes (Other)
  Sender: FDA-Public Use
  Company Number: MX-ELI_LILLY_AND_COMPANY-MX200809002760

PATIENT
  Sex: Female
  Weight: 85 kg

DRUGS (10)
  1. HUMALOG [Suspect]
     Indication: TYPE 2 DIABETES MELLITUS
     Dosage: 10 IU, EACH MORNING
     Route: 058
     Dates: start: 20080829
  2. HUMALOG [Suspect]
     Dosage: 7 IU, EACH EVENING
     Route: 058
     Dates: start: 20080829
  3. HUMALOG [Suspect]
     Dosage: 15 IU, EACH EVENING
     Route: 058
  4. HUMALOG [Suspect]
     Dosage: 7 IU, EACH EVENING
     Route: 058
  5. HUMALOG [Suspect]
     Dosage: 12 IU, EACH MORNING
     Route: 058
  6. HUMALOG [Suspect]
     Dosage: 8 IU, EACH EVENING
     Route: 058
  7. HUMALOG [Suspect]
     Dosage: 19 IU, EACH MORNING
     Route: 058
  8. HUMALOG [Suspect]
     Dosage: 9 IU, EACH EVENING
     Route: 058
  9. NIFEDIPINE [Concomitant]
     Indication: HYPERTENSION
     Dosage: 30 MG, EACH MORNING
     Route: 065
  10. NIFEDIPINE [Concomitant]
     Dosage: 30 MG, EACH EVENING
     Route: 065

REACTIONS (8)
  - ABDOMINAL PAIN [None]
  - BLOOD GLUCOSE INCREASED [None]
  - BLOOD PRESSURE INCREASED [None]
  - HEADACHE [None]
  - INTESTINAL OBSTRUCTION [None]
  - LOCALISED INFECTION [None]
  - MUSCULAR WEAKNESS [None]
  - PAIN [None]
